FAERS Safety Report 9294843 (Version 1)
Quarter: 2013Q2

REPORT INFORMATION
  Report Type: Spontaneous
  Country: AU (occurrence: AU)
  Receive Date: 20130517
  Receipt Date: 20130517
  Transmission Date: 20140414
  Serious: Yes (Other)
  Sender: FDA-Public Use
  Company Number: AU-AMGEN-AUSSP2013034085

PATIENT
  Age: 79 Year
  Sex: Male

DRUGS (2)
  1. XGEVA [Suspect]
     Indication: PROSTATE CANCER METASTATIC
     Dosage: 120 MG, Q6WK
     Route: 058
     Dates: start: 20121116
  2. OTHER CHEMOTHERAPEUTICS [Concomitant]

REACTIONS (2)
  - Depression [Recovering/Resolving]
  - Fatigue [Not Recovered/Not Resolved]
